FAERS Safety Report 23515489 (Version 4)
Quarter: 2024Q1

REPORT INFORMATION
  Report Type: Spontaneous
  Country: EG (occurrence: EG)
  Receive Date: 20240213
  Receipt Date: 20240311
  Transmission Date: 20240410
  Serious: Yes (Life-Threatening, Hospitalization, Other)
  Sender: FDA-Public Use
  Company Number: EG-NOVOPROD-1170564

PATIENT
  Age: 66 Year
  Sex: Female
  Weight: 80 kg

DRUGS (3)
  1. INSULIN HUMAN [Suspect]
     Active Substance: INSULIN HUMAN
     Indication: Type 2 diabetes mellitus
     Dosage: 60 IU, QD (40IU AM +20 IU PM)
     Route: 058
  2. METHYLTECHNO [Concomitant]
     Indication: Vitamin supplementation
     Dosage: ONCE DAILY
     Route: 048
     Dates: start: 20240125
  3. BISOPROLOL FUMARATE\HYDROCHLOROTHIAZIDE [Concomitant]
     Active Substance: BISOPROLOL FUMARATE\HYDROCHLOROTHIAZIDE
     Dosage: 5 MG, QD (NIGHT)
     Route: 048

REACTIONS (9)
  - Coronary artery occlusion [Recovered/Resolved]
  - Asphyxia [Unknown]
  - Hypertension [Recovered/Resolved]
  - Retinopathy haemorrhagic [Unknown]
  - Accident [Unknown]
  - Allergic respiratory disease [Recovered/Resolved]
  - Bronchitis [Recovered/Resolved]
  - Hyperglycaemia [Unknown]
  - Vitreous floaters [Not Recovered/Not Resolved]

NARRATIVE: CASE EVENT DATE: 20221101
